FAERS Safety Report 24286203 (Version 1)
Quarter: 2024Q3

REPORT INFORMATION
  Report Type: Spontaneous
  Country: CN (occurrence: CN)
  Receive Date: 20240905
  Receipt Date: 20240905
  Transmission Date: 20241017
  Serious: Yes (Hospitalization)
  Sender: PFIZER
  Company Number: CN-PFIZER INC-PV202400115545

PATIENT
  Age: 40 Year
  Sex: Female
  Weight: 53.5 kg

DRUGS (2)
  1. METHOTREXATE SODIUM [Suspect]
     Active Substance: METHOTREXATE SODIUM
     Indication: Benign hydatidiform mole
     Dosage: 21.4 MG, 1X/DAY
     Route: 030
     Dates: start: 20240819, end: 20240819
  2. METHOTREXATE SODIUM [Suspect]
     Active Substance: METHOTREXATE SODIUM
     Dosage: 0.0214MG/D, SINGLE
     Route: 030
     Dates: start: 20240819, end: 20240819

REACTIONS (16)
  - Mouth ulceration [Recovering/Resolving]
  - Ulcer [Recovering/Resolving]
  - Purulent discharge [Recovering/Resolving]
  - Pharyngeal erythema [Recovering/Resolving]
  - Upper respiratory tract congestion [Recovering/Resolving]
  - Ear congestion [Recovering/Resolving]
  - Rash [Recovering/Resolving]
  - White blood cell count decreased [Unknown]
  - Aspartate aminotransferase increased [Unknown]
  - Alanine aminotransferase increased [Unknown]
  - Bilirubin conjugated increased [Unknown]
  - C-reactive protein increased [Unknown]
  - Neutrophil percentage increased [Unknown]
  - Pyrexia [Recovering/Resolving]
  - Tachycardia [Recovering/Resolving]
  - Off label use [Unknown]

NARRATIVE: CASE EVENT DATE: 20240823
